FAERS Safety Report 9153787 (Version 1)
Quarter: 2013Q1

REPORT INFORMATION
  Report Type: Spontaneous
  Country: US (occurrence: US)
  Receive Date: 20130311
  Receipt Date: 20130311
  Transmission Date: 20140127
  Serious: No
  Sender: FDA-Public Use
  Company Number: US-JNJFOC-20130111346

PATIENT
  Age: 5 Decade
  Sex: Female

DRUGS (2)
  1. INVEGA SUSTENNA [Suspect]
     Indication: PRODUCT USED FOR UNKNOWN INDICATION
     Dosage: 2ND INITIATION DOSE
     Route: 030
     Dates: start: 201210, end: 201210
  2. TRAZODONE [Concomitant]
     Route: 048

REACTIONS (1)
  - Urticaria [Unknown]
